FAERS Safety Report 10099329 (Version 1)
Quarter: 2014Q2

REPORT INFORMATION
  Report Type: Spontaneous
  Country: US (occurrence: US)
  Receive Date: 20140423
  Receipt Date: 20140423
  Transmission Date: 20141212
  Serious: No
  Sender: FDA-Public Use
  Company Number: US-GILEAD-2013-0070490

PATIENT
  Age: 68 Year
  Sex: Female

DRUGS (7)
  1. LETAIRIS [Suspect]
     Indication: PRODUCT USED FOR UNKNOWN INDICATION
     Dosage: 5 MG, QD
     Dates: start: 20130126, end: 20130131
  2. ADCIRCA [Concomitant]
  3. AMLODIPINE [Concomitant]
  4. TRAVATAN [Concomitant]
  5. DALIRESP [Concomitant]
  6. ZOLOFT [Concomitant]
  7. FENOFIBRATE [Concomitant]

REACTIONS (2)
  - Epistaxis [Unknown]
  - Dyspnoea [Unknown]
